FAERS Safety Report 9870963 (Version 1)
Quarter: 2014Q1

REPORT INFORMATION
  Report Type: Spontaneous
  Country: US (occurrence: US)
  Receive Date: 20140205
  Receipt Date: 20140205
  Transmission Date: 20141002
  Serious: Yes (Hospitalization, Other)
  Sender: FDA-Public Use
  Company Number: US-PFIZER INC-2014033447

PATIENT
  Age: 50 Year
  Sex: Male
  Weight: 87.98 kg

DRUGS (2)
  1. LYRICA [Suspect]
     Indication: PROCEDURAL PAIN
     Dosage: 400 MG, UNK
     Dates: start: 2005, end: 2005
  2. LYRICA [Suspect]
     Indication: SLEEP DISORDER

REACTIONS (7)
  - Off label use [Unknown]
  - Pain [Unknown]
  - Blindness [Unknown]
  - Weight increased [Unknown]
  - Sexual dysfunction [Unknown]
  - Vision blurred [Unknown]
  - Ear pain [Unknown]
